FAERS Safety Report 5080282-6 (Version None)
Quarter: 2006Q3

REPORT INFORMATION
  Report Type: 
  Country: None (occurrence: None)
  Receive Date: 20060815
  Receipt Date: 20060712
  Transmission Date: 20061208
  Serious: Yes (Death)
  Sender: FDA-Public Use
  Company Number: FI-ABBOTT-06P-055-0337942-00

PATIENT
  Sex: Female
  Weight: 75 kg

DRUGS (1)
  1. REDUCTIL 15MG [Suspect]
     Indication: WEIGHT CONTROL
     Route: 048
     Dates: start: 20060115, end: 20060603

REACTIONS (2)
  - ARRHYTHMIA [None]
  - SUDDEN DEATH [None]
